FAERS Safety Report 18982066 (Version 4)
Quarter: 2021Q3

REPORT INFORMATION
  Report Type: Report from Study
  Country: US (occurrence: US)
  Receive Date: 20210308
  Receipt Date: 20210930
  Transmission Date: 20211014
  Serious: Yes (Death, Hospitalization, Other)
  Sender: FDA-Public Use
  Company Number: US-GLAXOSMITHKLINE-US2021AMR058156

PATIENT
  Age: 82 Year
  Sex: Female
  Weight: 70.3 kg

DRUGS (4)
  1. NIRAPARIB [Suspect]
     Active Substance: NIRAPARIB
     Dosage: 100 MG, QD
     Dates: start: 2021
  2. NIRAPARIB [Suspect]
     Active Substance: NIRAPARIB
     Dosage: 100 MG, QD
     Dates: start: 2021
  3. NIRAPARIB [Suspect]
     Active Substance: NIRAPARIB
     Indication: OVARIAN CANCER
     Dosage: 200 MG, QD
     Dates: start: 202102
  4. NIRAPARIB [Suspect]
     Active Substance: NIRAPARIB
     Dosage: 100 MG, QD
     Dates: start: 20210322

REACTIONS (10)
  - Faeces hard [Recovering/Resolving]
  - Sleep disorder [Recovered/Resolved]
  - Constipation [Recovered/Resolved]
  - Off label use [Unknown]
  - Colostomy [Unknown]
  - Anorectal operation [Unknown]
  - Blood pressure fluctuation [Unknown]
  - Hospitalisation [Recovered/Resolved]
  - Death [Fatal]
  - Surgery [Unknown]

NARRATIVE: CASE EVENT DATE: 20210226
